FAERS Safety Report 17051750 (Version 1)
Quarter: 2019Q4

REPORT INFORMATION
  Report Type: Spontaneous
  Country: US (occurrence: US)
  Receive Date: 20191120
  Receipt Date: 20191120
  Transmission Date: 20200122
  Serious: No
  Sender: FDA-Public Use
  Company Number: US-APOTEX-2019AP024174

PATIENT
  Age: 40 Year
  Sex: Female

DRUGS (4)
  1. BUPROPION. [Suspect]
     Active Substance: BUPROPION
     Indication: MAJOR DEPRESSION
     Dosage: UNK
     Route: 065
  2. BUPROPION. [Suspect]
     Active Substance: BUPROPION
     Indication: ANXIETY
  3. BUPROPION. [Suspect]
     Active Substance: BUPROPION
     Indication: ADJUSTMENT DISORDER
  4. TAMOXIFEN [Suspect]
     Active Substance: TAMOXIFEN
     Indication: CANCER HORMONAL THERAPY
     Dosage: UNK
     Route: 065

REACTIONS (4)
  - Libido decreased [Unknown]
  - Menopausal symptoms [Unknown]
  - Sexual dysfunction [Unknown]
  - Anorgasmia [Unknown]
